FAERS Safety Report 13493626 (Version 1)
Quarter: 2017Q2

REPORT INFORMATION
  Report Type: Spontaneous
  Country: US (occurrence: US)
  Receive Date: 20170427
  Receipt Date: 20170427
  Transmission Date: 20170830
  Serious: No
  Sender: FDA-Public Use
  Company Number: US-ROCHE-1442665

PATIENT
  Sex: Female

DRUGS (4)
  1. ERIVEDGE [Suspect]
     Active Substance: VISMODEGIB
     Indication: PRODUCT USED FOR UNKNOWN INDICATION
     Route: 048
     Dates: start: 20140314
  2. FOSAMAX [Concomitant]
     Active Substance: ALENDRONATE SODIUM
  3. DIOVAN [Concomitant]
     Active Substance: VALSARTAN
  4. BUMEX [Concomitant]
     Active Substance: BUMETANIDE

REACTIONS (2)
  - Dysgeusia [Unknown]
  - Muscle spasms [Unknown]
